FAERS Safety Report 4747108-9 (Version None)
Quarter: 2005Q3

REPORT INFORMATION
  Report Type: 
  Country: None (occurrence: None)
  Receive Date: 20050815
  Receipt Date: 20050801
  Transmission Date: 20060218
  Serious: Yes (Hospitalization)
  Sender: FDA-Public Use
  Company Number: HQWYE445514JUN04

PATIENT
  Age: 46 Year
  Sex: Female
  Weight: 65.83 kg

DRUGS (2)
  1. PREMPRO [Suspect]
     Indication: MENOPAUSAL SYMPTOMS
     Dosage: ORAL
     Route: 048
     Dates: start: 20010801, end: 20020717
  2. ATENOLOL [Concomitant]

REACTIONS (15)
  - ANASTOMOTIC COMPLICATION [None]
  - ARTERIAL BYPASS OPERATION [None]
  - DEEP VEIN THROMBOSIS [None]
  - FEMORAL ARTERY OCCLUSION [None]
  - GANGRENE [None]
  - GRAFT THROMBOSIS [None]
  - HYPERCOAGULATION [None]
  - LEG AMPUTATION [None]
  - PAIN [None]
  - PERIPHERAL ISCHAEMIA [None]
  - PERIPHERAL VASCULAR DISORDER [None]
  - POSTOPERATIVE INFECTION [None]
  - THERAPY NON-RESPONDER [None]
  - VASCULAR GRAFT OCCLUSION [None]
  - VENOUS OCCLUSION [None]
